FAERS Safety Report 6258303-4 (Version None)
Quarter: 2009Q3

REPORT INFORMATION
  Report Type: 
  Country: None (occurrence: None)
  Receive Date: 20090702
  Receipt Date: 20090617
  Transmission Date: 20100115
  Serious: Yes (Death)
  Sender: FDA-Public Use
  Company Number: 8047918

PATIENT
  Age: 76 Year
  Sex: Female

DRUGS (2)
  1. KEPPRA [Suspect]
     Indication: CONVULSION
     Dosage: 500 MG 2 D PO
     Route: 048
     Dates: start: 20081001, end: 20090608
  2. TAMOXIFEN CITRATE [Concomitant]

REACTIONS (1)
  - STATUS EPILEPTICUS [None]
